FAERS Safety Report 11172728 (Version 1)
Quarter: 2015Q2

REPORT INFORMATION
  Report Type: Spontaneous
  Country: CN (occurrence: CN)
  Receive Date: 20150608
  Receipt Date: 20150608
  Transmission Date: 20150821
  Serious: Yes (Other)
  Sender: FDA-Public Use
  Company Number: CN-MUNDIPHARMA DS AND PHARMACOVIGILANCE-GBR-2015-0028576

PATIENT
  Sex: Female

DRUGS (4)
  1. CODEINE [Concomitant]
     Active Substance: CODEINE
  2. MORPHINE SULFATE PR TABLET [Suspect]
     Active Substance: MORPHINE SULFATE
     Indication: CANCER PAIN
     Dosage: 10 MG, 1-2 TABLETS DAILY
     Route: 048
  3. TRAMCONTIN [Suspect]
     Active Substance: TRAMADOL
     Indication: CANCER PAIN
     Route: 048
  4. OXYCONTIN [Suspect]
     Active Substance: OXYCODONE HYDROCHLORIDE
     Indication: CANCER PAIN
     Dosage: 20 MG, DAILY
     Route: 048

REACTIONS (4)
  - Delirium [Recovered/Resolved]
  - Medication error [Recovered/Resolved]
  - Incoherent [Recovered/Resolved]
  - Inadequate analgesia [Recovered/Resolved]
